FAERS Safety Report 14054685 (Version 2)
Quarter: 2017Q4

REPORT INFORMATION
  Report Type: Spontaneous
  Country: US (occurrence: US)
  Receive Date: 20171006
  Receipt Date: 20171023
  Transmission Date: 20180321
  Serious: No
  Sender: FDA-Public Use
  Company Number: US-ELI_LILLY_AND_COMPANY-US201710001558

PATIENT
  Age: 68 Year
  Sex: Female

DRUGS (5)
  1. HUMALOG [Suspect]
     Active Substance: INSULIN LISPRO
     Indication: TYPE 2 DIABETES MELLITUS
     Dosage: 12 U, DAILY
     Route: 058
     Dates: start: 201707
  2. ALCOHOL. [Suspect]
     Active Substance: ALCOHOL
     Indication: PRODUCT USED FOR UNKNOWN INDICATION
     Dosage: UNK, UNKNOWN
     Route: 065
  3. QUININE [Concomitant]
     Active Substance: QUININE
     Indication: NEUROPATHY PERIPHERAL
  4. JANUVIA [Concomitant]
     Active Substance: SITAGLIPTIN PHOSPHATE
     Indication: TYPE 2 DIABETES MELLITUS
     Dosage: 100 MG, UNKNOWN
  5. DEPAKOTE [Concomitant]
     Active Substance: DIVALPROEX SODIUM
     Indication: BIPOLAR DISORDER

REACTIONS (8)
  - Abdominal pain upper [Not Recovered/Not Resolved]
  - Blood glucose increased [Recovering/Resolving]
  - Hernia [Unknown]
  - Sleep disorder due to general medical condition, insomnia type [Not Recovered/Not Resolved]
  - Injection site pain [Recovered/Resolved]
  - Cough [Not Recovered/Not Resolved]
  - Stress [Recovering/Resolving]
  - Road traffic accident [Recovered/Resolved]

NARRATIVE: CASE EVENT DATE: 20171003
